FAERS Safety Report 5688506-9 (Version None)
Quarter: 2008Q1

REPORT INFORMATION
  Report Type: 
  Country: None (occurrence: None)
  Receive Date: 20080331
  Receipt Date: 20080318
  Transmission Date: 20080703
  Serious: Yes (Life-Threatening, Other)
  Sender: FDA-Public Use
  Company Number: US-BAYER-200810691NA

PATIENT
  Age: 59 Year
  Sex: Male

DRUGS (7)
  1. AVELOX [Suspect]
     Indication: CELLULITIS
     Dosage: TOTAL DAILY DOSE: 400 MG  UNIT DOSE: 400 MG
     Route: 048
     Dates: start: 20071201
  2. PLAVIX [Concomitant]
  3. LOPRESSOR [Concomitant]
  4. LASIX [Concomitant]
  5. MEVACOR [Concomitant]
  6. LANTUS [Concomitant]
  7. ZAROXOLYN [Concomitant]

REACTIONS (7)
  - ANAPHYLACTIC SHOCK [None]
  - CAROTID ARTERY OCCLUSION [None]
  - DIZZINESS [None]
  - LOSS OF CONSCIOUSNESS [None]
  - PRURITUS [None]
  - THROMBOSIS [None]
  - YELLOW SKIN [None]
